FAERS Safety Report 10097759 (Version 1)
Quarter: 2014Q2

REPORT INFORMATION
  Report Type: Spontaneous
  Country: US (occurrence: US)
  Receive Date: 20140423
  Receipt Date: 20140423
  Transmission Date: 20141212
  Serious: No
  Sender: FDA-Public Use
  Company Number: US-BIOGENIDEC-2014BI034962

PATIENT
  Age: 54 Year
  Sex: Female

DRUGS (16)
  1. TECFIDERA [Suspect]
     Indication: MULTIPLE SCLEROSIS
     Route: 048
     Dates: start: 20140306
  2. TECFIDERA [Suspect]
     Indication: MULTIPLE SCLEROSIS
     Dates: start: 20140310, end: 20140316
  3. TECFIDERA [Suspect]
     Indication: MULTIPLE SCLEROSIS
     Dates: start: 20140317, end: 20140324
  4. TECFIDERA [Suspect]
     Indication: MULTIPLE SCLEROSIS
     Dates: start: 20140331
  5. ARMOUR THYROID [Concomitant]
  6. CETIRIZINE HCL [Concomitant]
  7. CLONAZEPAM [Concomitant]
  8. CRESTOR [Concomitant]
  9. FLUOXETINE HCL [Concomitant]
  10. SINGULAIR [Concomitant]
  11. SYNTHROID [Concomitant]
  12. TAMSULOSIN HCL [Concomitant]
  13. TOPIRAMATE [Concomitant]
  14. VITAMIN B COMPLEX [Concomitant]
  15. VITAMIN D [Concomitant]
  16. WELLBUTRIN [Concomitant]

REACTIONS (11)
  - Oropharyngeal pain [Unknown]
  - Muscle spasms [Recovered/Resolved]
  - Fatigue [Not Recovered/Not Resolved]
  - Abdominal distension [Not Recovered/Not Resolved]
  - Prescribed underdose [Not Recovered/Not Resolved]
  - Urinary retention [Unknown]
  - Somnolence [Not Recovered/Not Resolved]
  - Erythema [Recovered/Resolved]
  - Rash [Recovered/Resolved]
  - Diarrhoea [Recovered/Resolved]
  - Abdominal pain upper [Recovered/Resolved]
